FAERS Safety Report 24112683 (Version 1)
Quarter: 2024Q3

REPORT INFORMATION
  Report Type: Spontaneous
  Country: US (occurrence: US)
  Receive Date: 20240719
  Receipt Date: 20240719
  Transmission Date: 20241017
  Serious: Yes (Hospitalization, Other)
  Sender: VIFOR
  Company Number: US-Vifor (International) Inc.-VIT-2024-06299

PATIENT
  Age: 81 Year
  Sex: Female
  Weight: 61.5 kg

DRUGS (2)
  1. MIRCERA [Suspect]
     Active Substance: METHOXY POLYETHYLENE GLYCOL-EPOETIN BETA
     Indication: Nephrogenic anaemia
     Route: 040
     Dates: start: 20240402, end: 20240621
  2. MIRCERA [Suspect]
     Active Substance: METHOXY POLYETHYLENE GLYCOL-EPOETIN BETA
     Dosage: 5TH DOSE OF MIRCERA
     Route: 040
     Dates: start: 20240527

REACTIONS (4)
  - Drug hypersensitivity [Unknown]
  - Hypotension [Recovered/Resolved]
  - Loss of consciousness [Unknown]
  - Blood pressure increased [Unknown]

NARRATIVE: CASE EVENT DATE: 20240527
